FAERS Safety Report 5690909-3 (Version None)
Quarter: 2008Q2

REPORT INFORMATION
  Report Type: 
  Country: None (occurrence: None)
  Receive Date: 20080401
  Receipt Date: 20080326
  Transmission Date: 20081010
  Serious: Yes (Other)
  Sender: FDA-Public Use
  Company Number: FR-BRISTOL-MYERS SQUIBB COMPANY-14131510

PATIENT

DRUGS (7)
  1. CISPLATIN [Suspect]
     Indication: GERM CELL CANCER
     Dosage: 20 MG/M2 ON DAY 1 TO5 IN BEP ARM AND 100MG/M2 ON DAY 3 IN CISCA/VB ARM
     Route: 042
  2. BLEOMYCIN SULFATE [Suspect]
     Indication: GERM CELL CANCER
     Dosage: 25MG ON DAYS 1 TO 5 IN CISCA/VB ARM AND 30 MG ON DAY1,8 AND 15
     Route: 042
  3. CYCLOPHOSPHAMIDE [Suspect]
     Indication: GERM CELL CANCER
     Route: 042
  4. DOXORUBICIN HCL [Suspect]
     Indication: GERM CELL CANCER
     Route: 042
  5. ETOPOSIDE [Suspect]
     Indication: GERM CELL CANCER
     Dosage: ON DAYS 1 TO 5
  6. IFOSFAMIDE [Suspect]
     Indication: GERM CELL CANCER
  7. VINBLASTINE SULFATE [Suspect]
     Indication: GERM CELL CANCER
     Route: 042

REACTIONS (10)
  - ANAEMIA [None]
  - FEBRILE NEUTROPENIA [None]
  - MUCOSAL INFLAMMATION [None]
  - NEPHROPATHY TOXIC [None]
  - NEUROTOXICITY [None]
  - NEUTROPENIA [None]
  - PULMONARY TOXICITY [None]
  - SKIN TOXICITY [None]
  - THROMBOCYTOPENIA [None]
  - VOMITING [None]
